FAERS Safety Report 9149832 (Version 2)
Quarter: 2013Q1

REPORT INFORMATION
  Report Type: Spontaneous
  Country: None (occurrence: US)
  Receive Date: 20130308
  Receipt Date: 20130318
  Transmission Date: 20140127
  Serious: Yes (Hospitalization)
  Sender: FDA-Public Use
  Company Number: US-ABBOTT-13P-163-1057048-00

PATIENT
  Sex: Male
  Weight: 68.1 kg

DRUGS (8)
  1. LUPRON DEPOT [Suspect]
     Indication: PROSTATE CANCER
     Route: 030
     Dates: start: 20121226
  2. METOPROLOL [Concomitant]
     Indication: HYPERTENSION
  3. SIMVASTATIN [Concomitant]
     Indication: BLOOD CHOLESTEROL INCREASED
  4. COZAAR [Concomitant]
     Indication: PRODUCT USED FOR UNKNOWN INDICATION
  5. ATORVASTATIN [Concomitant]
     Indication: PRODUCT USED FOR UNKNOWN INDICATION
  6. LOSARTIN [Concomitant]
     Indication: CARDIAC DISORDER
  7. WARFARIN [Concomitant]
     Indication: ANTICOAGULANT THERAPY
  8. ISOSORBIDE [Concomitant]
     Indication: CARDIAC DISORDER

REACTIONS (6)
  - Delusional disorder, unspecified type [Not Recovered/Not Resolved]
  - Aggression [Not Recovered/Not Resolved]
  - Confusional state [Not Recovered/Not Resolved]
  - Insomnia [Not Recovered/Not Resolved]
  - Abnormal dreams [Not Recovered/Not Resolved]
  - Paranoia [Not Recovered/Not Resolved]
